FAERS Safety Report 6460264-X (Version None)
Quarter: 2009Q4

REPORT INFORMATION
  Report Type: 
  Country: None (occurrence: None)
  Receive Date: 20091130
  Receipt Date: 20091116
  Transmission Date: 20100525
  Serious: Yes (Hospitalization)
  Sender: FDA-Public Use
  Company Number: PHHY2009ZA50040

PATIENT
  Sex: Male

DRUGS (3)
  1. EXFORGE [Suspect]
     Dosage: 160/5 MG
     Route: 048
  2. INDAPAMIDE/PERINDOPRIL [Concomitant]
     Dosage: UNK
     Dates: end: 20091113
  3. SIMVASTATIN [Concomitant]
     Indication: BLOOD CHOLESTEROL

REACTIONS (4)
  - BLOOD PRESSURE INCREASED [None]
  - CHEST PAIN [None]
  - INSOMNIA [None]
  - MUSCLE SPASMS [None]
